FAERS Safety Report 9503100 (Version 4)
Quarter: 2014Q2

REPORT INFORMATION
  Report Type: Spontaneous
  Country: US (occurrence: None)
  Receive Date: 20130107
  Receipt Date: 20130724
  Transmission Date: 20141212
  Serious: No
  Sender: FDA-Public Use
  Company Number: PHEH2012US020352

PATIENT
  Sex: Female
  Weight: 93.9 kg

DRUGS (4)
  1. GILENYA [Suspect]
     Indication: MULTIPLE SCLEROSIS
     Route: 048
     Dates: start: 201201
  2. GABAPENTIN (GABAPENTIN) [Concomitant]
  3. BACLOFEN (BACLOFEN) [Concomitant]
  4. MELOXICAM (MELOXICAM) [Concomitant]

REACTIONS (2)
  - Fatigue [None]
  - Somnolence [None]
